FAERS Safety Report 8157739-4 (Version None)
Quarter: 2012Q1

REPORT INFORMATION
  Report Type: 
  Country: None (occurrence: None)
  Receive Date: 20120222
  Receipt Date: 20120221
  Transmission Date: 20120608
  Serious: No
  Sender: FDA-Public Use
  Company Number: US-PFIZER INC-2012046191

PATIENT
  Sex: Male
  Weight: 92.971 kg

DRUGS (2)
  1. LYRICA [Suspect]
     Indication: PAIN
     Dosage: 50 MG, AS NEEDED
     Route: 048
  2. WARFARIN [Concomitant]
     Indication: THROMBOSIS
     Dosage: UNK

REACTIONS (2)
  - SOMNOLENCE [None]
  - PAIN [None]
